FAERS Safety Report 9950951 (Version 1)
Quarter: 2014Q1

REPORT INFORMATION
  Report Type: Report from Study
  Country: US (occurrence: US)
  Receive Date: 20140304
  Receipt Date: 20140304
  Transmission Date: 20141002
  Serious: No
  Sender: FDA-Public Use
  Company Number: US-ABBVIE-13P-163-1068229-00

PATIENT
  Age: 41 Year
  Sex: Female

DRUGS (9)
  1. HUMIRA [Suspect]
     Indication: CROHN^S DISEASE
     Dosage: LOADING DOSE ONLY
     Dates: start: 20130307
  2. LISINOPRIL [Concomitant]
     Indication: BLOOD PRESSURE
  3. BENTYL [Concomitant]
     Indication: ABDOMINAL PAIN
     Dosage: AS NEEDED
  4. ALPRAZOLAM [Concomitant]
     Indication: ANXIETY
  5. PHENERGAN [Concomitant]
     Indication: PRODUCT USED FOR UNKNOWN INDICATION
  6. METFORMIN [Concomitant]
     Indication: DIABETES MELLITUS
  7. PAXIL [Concomitant]
     Indication: DEPRESSION
  8. NEXIUM [Concomitant]
     Indication: GASTROOESOPHAGEAL REFLUX DISEASE
  9. EXCEDRIN MIGRAINE [Concomitant]
     Indication: MIGRAINE

REACTIONS (1)
  - Vaginal discharge [Recovered/Resolved]
